FAERS Safety Report 21608940 (Version 1)
Quarter: 2022Q4

REPORT INFORMATION
  Report Type: Spontaneous
  Country: JP (occurrence: JP)
  Receive Date: 20221117
  Receipt Date: 20221117
  Transmission Date: 20230112
  Serious: Yes (Death, Hospitalization, Other)
  Sender: FDA-Public Use
  Company Number: JP-PFIZER INC-PV202200102190

PATIENT
  Age: 73 Year
  Sex: Male

DRUGS (2)
  1. METHYLPREDNISOLONE [Suspect]
     Active Substance: METHYLPREDNISOLONE
     Indication: Microscopic polyangiitis
     Dosage: 500 MG
  2. METHYLPREDNISOLONE [Suspect]
     Active Substance: METHYLPREDNISOLONE
     Dosage: 125 MG

REACTIONS (6)
  - Haemoptysis [Fatal]
  - Bronchopulmonary aspergillosis [Fatal]
  - Circulatory collapse [Fatal]
  - Respiratory failure [Fatal]
  - Glomerulonephritis rapidly progressive [Fatal]
  - Microscopic polyangiitis [Fatal]
